FAERS Safety Report 17785953 (Version 2)
Quarter: 2020Q2

REPORT INFORMATION
  Report Type: Spontaneous
  Country: US (occurrence: US)
  Receive Date: 20200513
  Receipt Date: 20200605
  Transmission Date: 20200714
  Serious: No
  Sender: FDA-Public Use
  Company Number: US-ANIPHARMA-2019-US-013861

PATIENT
  Age: 43 Year
  Sex: Female

DRUGS (1)
  1. LITHIUM CARBONATE (NON-SPECIFIC) [Suspect]
     Active Substance: LITHIUM
     Indication: PRODUCT USED FOR UNKNOWN INDICATION
     Dosage: UNK
     Route: 065

REACTIONS (14)
  - Urinary incontinence [Unknown]
  - Migraine [Unknown]
  - Vomiting [Unknown]
  - Incontinence [Unknown]
  - Hallucination, auditory [Unknown]
  - Arthralgia [Unknown]
  - Back pain [Unknown]
  - Fatigue [Unknown]
  - Tremor [Unknown]
  - Somnolence [Unknown]
  - Muscular weakness [Unknown]
  - Hallucination, visual [Unknown]
  - Speech disorder [Unknown]
  - Anal incontinence [Unknown]
